FAERS Safety Report 6639557-9 (Version None)
Quarter: 2010Q1

REPORT INFORMATION
  Report Type: 
  Country: None (occurrence: None)
  Receive Date: 20100318
  Receipt Date: 20100309
  Transmission Date: 20100710
  Serious: Yes (Hospitalization)
  Sender: FDA-Public Use
  Company Number: US-JNJFOC-20100109490

PATIENT
  Sex: Female
  Weight: 52.16 kg

DRUGS (5)
  1. FENTANYL-100 [Suspect]
     Indication: FACIAL PAIN
     Route: 062
  2. UNKNOWN MEDICATION [Suspect]
     Indication: DRUG USE FOR UNKNOWN INDICATION
     Route: 065
  3. VERAPAMIL [Concomitant]
     Indication: HYPERTENSION
     Route: 048
  4. ISOSORBIDE MONONITRATE [Concomitant]
     Indication: CARDIAC DISORDER
     Route: 048
  5. VYTORIN [Concomitant]
     Indication: BLOOD CHOLESTEROL
     Dosage: DOSE: 10MG/40MG
     Route: 048

REACTIONS (2)
  - HYPOTENSION [None]
  - PNEUMONIA [None]
